FAERS Safety Report 5447261-8 (Version None)
Quarter: 2007Q3

REPORT INFORMATION
  Report Type: 
  Country: None (occurrence: None)
  Receive Date: 20070905
  Receipt Date: 20070905
  Transmission Date: 20080115
  Serious: Yes (Hospitalization)
  Sender: FDA-Public Use
  Company Number: None

PATIENT
  Age: 43 Year
  Sex: Female
  Weight: 103.6 kg

DRUGS (1)
  1. NPH INSULIN [Suspect]
     Indication: DIABETES MELLITUS
     Dosage: NPH 30 UNITS  BID  SQ
     Route: 058
     Dates: start: 20070131, end: 20070131

REACTIONS (2)
  - DRUG DOSE OMISSION [None]
  - MEDICATION ERROR [None]
